FAERS Safety Report 9644823 (Version 1)
Quarter: 2013Q4

REPORT INFORMATION
  Report Type: Spontaneous
  Country: US (occurrence: US)
  Receive Date: 20131025
  Receipt Date: 20131025
  Transmission Date: 20140711
  Serious: No
  Sender: FDA-Public Use
  Company Number: US-PFIZER INC-2013302137

PATIENT
  Sex: Female

DRUGS (4)
  1. LYRICA [Suspect]
     Dosage: 300 MG, DAILY
  2. LYRICA [Suspect]
     Dosage: 150 MG, UNK
  3. LYRICA [Suspect]
     Dosage: 300 MG (TAKING TWO CAPSULES OF 150MG EACH), 2X/DAY
  4. LYRICA [Suspect]
     Dosage: 150 MG, 1X/DAY
     Dates: start: 20131020

REACTIONS (4)
  - Intentional drug misuse [Unknown]
  - Drug withdrawal syndrome [Unknown]
  - Nausea [Unknown]
  - Tremor [Unknown]
